FAERS Safety Report 15678339 (Version 1)
Quarter: 2018Q4

REPORT INFORMATION
  Report Type: Spontaneous
  Country: DE (occurrence: DE)
  Receive Date: 20181201
  Receipt Date: 20181201
  Transmission Date: 20190205
  Serious: Yes (Other)
  Sender: FDA-Public Use
  Company Number: DE-TEVA-2018-DE-980820

PATIENT
  Sex: Female

DRUGS (3)
  1. TEGRETAL [Interacting]
     Active Substance: CARBAMAZEPINE
     Route: 048
  2. ORAL CONTRACEPTIVE NOS [Interacting]
     Active Substance: UNSPECIFIED INGREDIENT
     Route: 048
  3. MYLEPSINUM [Suspect]
     Active Substance: PRIMIDONE
     Route: 065

REACTIONS (2)
  - Drug interaction [Unknown]
  - Seizure [Recovered/Resolved]
